FAERS Safety Report 18755970 (Version 1)
Quarter: 2021Q1

REPORT INFORMATION
  Report Type: Spontaneous
  Country: US (occurrence: US)
  Receive Date: 20210116
  Receipt Date: 20210116
  Transmission Date: 20210419
  Serious: Yes (Other)
  Sender: FDA-Public Use
  Company Number: None

PATIENT
  Age: 70 Year
  Sex: Female
  Weight: 52.65 kg

DRUGS (7)
  1. SIMPONI INFUSION [Concomitant]
  2. CELECOXIB. [Concomitant]
     Active Substance: CELECOXIB
  3. VITAMIN C [Concomitant]
     Active Substance: ASCORBIC ACID
  4. IBUPROFEN. [Concomitant]
     Active Substance: IBUPROFEN
  5. FLIC ACID [Concomitant]
  6. VIT D [Concomitant]
     Active Substance: VITAMIN D NOS
  7. PROLIA [Suspect]
     Active Substance: DENOSUMAB
     Indication: OSTEOPOROSIS
     Dosage: ?          QUANTITY:1 INJECTION(S);OTHER FREQUENCY:EVERY 6 MONTHS;?
     Route: 030
     Dates: start: 20200520, end: 20201228

REACTIONS (12)
  - Mouth swelling [None]
  - Dysphonia [None]
  - Pruritus [None]
  - Lip exfoliation [None]
  - Genital rash [None]
  - Dry skin [None]
  - Headache [None]
  - Lip swelling [None]
  - Insomnia [None]
  - Oral mucosal discolouration [None]
  - Dry mouth [None]
  - Chapped lips [None]

NARRATIVE: CASE EVENT DATE: 20201230
